FAERS Safety Report 9730812 (Version 1)
Quarter: 2013Q4

REPORT INFORMATION
  Report Type: Spontaneous
  Country: US (occurrence: US)
  Receive Date: 20131202
  Receipt Date: 20131202
  Transmission Date: 20140711
  Serious: Yes (Hospitalization)
  Sender: FDA-Public Use
  Company Number: US-BRISTOL-MYERS SQUIBB COMPANY-19838838

PATIENT
  Age: 63 Year
  Sex: Female

DRUGS (3)
  1. YERVOY [Suspect]
     Indication: MALIGNANT MELANOMA
     Dosage: SECOND DOSE ON : 11-NOV-2013
     Route: 042
     Dates: start: 20131021
  2. TYLENOL [Concomitant]
     Indication: MIGRAINE
  3. IMITREX [Concomitant]
     Indication: MIGRAINE

REACTIONS (1)
  - Brain neoplasm benign [Recovering/Resolving]
